FAERS Safety Report 12459490 (Version 1)
Quarter: 2016Q2

REPORT INFORMATION
  Report Type: Spontaneous
  Country: US (occurrence: None)
  Receive Date: 20160610
  Receipt Date: 20160610
  Transmission Date: 20160815
  Serious: Yes (Hospitalization)
  Sender: FDA-Public Use
  Company Number: None

PATIENT
  Age: 70 Year
  Sex: Female
  Weight: 54.61 kg

DRUGS (10)
  1. MYRBETRIQ [Concomitant]
     Active Substance: MIRABEGRON
  2. ACYCLOVIR. [Concomitant]
     Active Substance: ACYCLOVIR
  3. DIAZEPAM. [Concomitant]
     Active Substance: DIAZEPAM
  4. PREMARIN [Concomitant]
     Active Substance: ESTROGENS, CONJUGATED
  5. AMPYRA [Concomitant]
     Active Substance: DALFAMPRIDINE
  6. HYDROXYZINE [Concomitant]
     Active Substance: HYDROXYZINE\HYDROXYZINE HYDROCHLORIDE
  7. TRAMADOL. [Concomitant]
     Active Substance: TRAMADOL
  8. VITAMIN D [Concomitant]
     Active Substance: CHOLECALCIFEROL
  9. ALEMTUZUMAB GENZYME [Suspect]
     Active Substance: ALEMTUZUMAB
     Indication: MULTIPLE SCLEROSIS
     Route: 042
     Dates: start: 20160302, end: 20160304
  10. SOLU-MEDROL [Suspect]
     Active Substance: METHYLPREDNISOLONE SODIUM SUCCINATE
     Route: 042
     Dates: start: 20160302, end: 20160304

REACTIONS (2)
  - Pneumonia [None]
  - Urinary tract infection [None]

NARRATIVE: CASE EVENT DATE: 20160415
